FAERS Safety Report 8051383-5 (Version None)
Quarter: 2012Q1

REPORT INFORMATION
  Report Type: 
  Country: None (occurrence: None)
  Receive Date: 20120117
  Receipt Date: 20120113
  Transmission Date: 20120608
  Serious: Yes (Other)
  Sender: FDA-Public Use
  Company Number: GB-ROCHE-1030454

PATIENT
  Age: 55 Year
  Sex: Female

DRUGS (1)
  1. ACTEMRA [Suspect]
     Indication: PRODUCT USED FOR UNKNOWN INDICATION

REACTIONS (1)
  - CONDITION AGGRAVATED [None]
